FAERS Safety Report 8584030-4 (Version None)
Quarter: 2012Q3

REPORT INFORMATION
  Report Type: 
  Country: None (occurrence: None)
  Receive Date: 20120810
  Receipt Date: 20120720
  Transmission Date: 20120928
  Serious: No
  Sender: FDA-Public Use
  Company Number: US-009507513-1207USA010067

PATIENT

DRUGS (5)
  1. VICTRELIS [Suspect]
     Dosage: 800 MG, TID
     Route: 048
  2. RIBAVIRIN [Suspect]
     Dosage: 1000/DAY
  3. DIOVAN [Concomitant]
  4. PEG-INTRON [Suspect]
  5. PEGASYS [Suspect]

REACTIONS (1)
  - RASH [None]
